FAERS Safety Report 12998250 (Version 1)
Quarter: 2016Q4

REPORT INFORMATION
  Report Type: Spontaneous
  Country: US (occurrence: US)
  Receive Date: 20161202
  Receipt Date: 20161202
  Transmission Date: 20170207
  Serious: Yes (Other)
  Sender: FDA-Public Use
  Company Number: None

PATIENT
  Age: 65 Year
  Sex: Female
  Weight: 54 kg

DRUGS (4)
  1. VICKS NYQUIL [Suspect]
     Active Substance: ACETAMINOPHEN\DEXTROMETHORPHAN HYDROBROMIDE\DOXYLAMINE SUCCINATE
     Indication: INFLUENZA
     Dosage: ?          QUANTITY:2 CAPSULE(S);?
     Route: 048
     Dates: start: 20161103, end: 20161104
  2. VITAMIN B [Concomitant]
     Active Substance: VITAMIN B
  3. CALCIUM [Concomitant]
     Active Substance: CALCIUM
  4. MULTI VITAMINS [Concomitant]
     Active Substance: VITAMINS

REACTIONS (3)
  - No reaction on previous exposure to drug [None]
  - Drug hypersensitivity [None]
  - Product quality issue [None]

NARRATIVE: CASE EVENT DATE: 20161108
